FAERS Safety Report 5635806-4 (Version None)
Quarter: 2008Q1

REPORT INFORMATION
  Report Type: 
  Country: None (occurrence: None)
  Receive Date: 20080221
  Receipt Date: 20080211
  Transmission Date: 20080703
  Serious: Yes (Hospitalization)
  Sender: FDA-Public Use
  Company Number: 028-21880-08020278

PATIENT
  Age: 45 Year
  Sex: Male
  Weight: 99 kg

DRUGS (4)
  1. REVLIMID [Suspect]
     Indication: MULTIPLE MYELOMA
     Dosage: 15 MG, DAYS 1-21, ORAL
     Route: 048
     Dates: start: 20071120, end: 20080204
  2. CYCLOPHOSPHAMIDE [Suspect]
     Indication: MULTIPLE MYELOMA
     Dosage: 150MG/M2, DAYS 1, 8 + 15, ORAL
     Route: 048
     Dates: start: 20071120, end: 20080204
  3. PREDNISONE TAB [Suspect]
     Indication: MULTIPLE MYELOMA
     Dosage: 100 MG, Q 2 DAYS (28 DAYS CYCLE), ORAL
     Route: 048
     Dates: start: 20071120, end: 20080204
  4. PRBCS (BLOOD TRANSFUSION, AUXILLARY PRODUCTS) [Suspect]
     Indication: HAEMOGLOBIN
     Dosage: 1 UNIT, INTRAVENOUS
     Route: 042
     Dates: start: 20080206, end: 20080208

REACTIONS (10)
  - BACILLUS INFECTION [None]
  - BLOOD POTASSIUM DECREASED [None]
  - BLOOD SODIUM DECREASED [None]
  - CAECITIS [None]
  - ESCHERICHIA INFECTION [None]
  - HYPOKALAEMIA [None]
  - LYMPHADENOPATHY [None]
  - NEUTROPENIA [None]
  - STEM CELL TRANSPLANT [None]
  - URINE OUTPUT DECREASED [None]
